FAERS Safety Report 22992452 (Version 9)
Quarter: 2024Q2

REPORT INFORMATION
  Report Type: Report from Study
  Country: CA (occurrence: CA)
  Receive Date: 20230927
  Receipt Date: 20240412
  Transmission Date: 20240716
  Serious: Yes (Hospitalization, Other)
  Sender: FDA-Public Use
  Company Number: CA-JNJFOC-20230948283

PATIENT
  Age: 62 Year
  Sex: Female

DRUGS (5)
  1. TREMFYA [Suspect]
     Active Substance: GUSELKUMAB
     Indication: Psoriatic arthropathy
     Route: 058
     Dates: start: 20230911
  2. DEXAMETHASONE [Concomitant]
     Active Substance: DEXAMETHASONE
     Indication: Pain
     Route: 048
     Dates: start: 20231108, end: 20231118
  3. DEXAMETHASONE [Concomitant]
     Active Substance: DEXAMETHASONE
     Route: 048
     Dates: start: 20231122
  4. METHOTREXATE [Concomitant]
     Active Substance: METHOTREXATE
     Indication: Product used for unknown indication
     Route: 065
  5. PREDNISONE [Concomitant]
     Active Substance: PREDNISONE
     Indication: Pain
     Route: 065
     Dates: start: 202403

REACTIONS (5)
  - Pneumonia [Recovered/Resolved with Sequelae]
  - Psoriatic arthropathy [Unknown]
  - COVID-19 [Recovering/Resolving]
  - Oedema peripheral [Not Recovered/Not Resolved]
  - Post procedural infection [Recovering/Resolving]

NARRATIVE: CASE EVENT DATE: 20231001
